FAERS Safety Report 5916300-X (Version None)
Quarter: 2008Q4

REPORT INFORMATION
  Report Type: 
  Country: None (occurrence: None)
  Receive Date: 20081013
  Receipt Date: 20081007
  Transmission Date: 20090506
  Serious: Yes (Death, Hospitalization, Other)
  Sender: FDA-Public Use
  Company Number: PHEH2008US08976

PATIENT
  Sex: Male
  Weight: 108.84 kg

DRUGS (10)
  1. METOPROLOL TARTRATE [Suspect]
     Dosage: UNK
  2. ACTIQ [Interacting]
     Indication: NECK PAIN
     Dosage: 800UG UP TO FOUR LOZENGERS DAILY PRN
     Route: 002
     Dates: start: 20040129, end: 20040225
  3. ACTIQ [Interacting]
     Indication: BACK PAIN
     Dosage: 1200UG UP TO FOUR LOZENGES DAILY PRN
     Route: 002
     Dates: start: 20040226, end: 20040914
  4. ACTIQ [Interacting]
     Dosage: 1600UG UP TO FOUR LOZENGES DAILY PRN
     Route: 002
     Dates: start: 20040915, end: 20050401
  5. ACTIQ [Interacting]
     Dosage: 1600UG UP TO FOUR LOZENGES DAILY PRN
     Route: 002
     Dates: start: 20060428
  6. DURAGESIC-100 [Interacting]
     Indication: PAIN
     Dosage: UNK
     Dates: start: 20031104
  7. DURAGESIC-100 [Interacting]
     Dosage: UNK
     Route: 062
     Dates: start: 20060428
  8. SERTRALINE [Interacting]
     Dosage: UNK
     Dates: end: 20061215
  9. BUPROPION HCL [Interacting]
     Dosage: UNK
  10. DEMEROL [Concomitant]
     Dosage: UNK
     Dates: end: 20060401

REACTIONS (15)
  - CEREBROVASCULAR ACCIDENT [None]
  - CHEST PAIN [None]
  - COMA [None]
  - CONDITION AGGRAVATED [None]
  - DEPRESSION [None]
  - DIALYSIS [None]
  - DRUG INTERACTION [None]
  - HEAD INJURY [None]
  - MULTI-ORGAN FAILURE [None]
  - MYOCARDIAL INFARCTION [None]
  - PAIN [None]
  - RADICULOPATHY [None]
  - RESPIRATORY DISORDER [None]
  - ROAD TRAFFIC ACCIDENT [None]
  - UNRESPONSIVE TO STIMULI [None]
